FAERS Safety Report 20348201 (Version 1)
Quarter: 2022Q1

REPORT INFORMATION
  Report Type: Spontaneous
  Country: US (occurrence: US)
  Receive Date: 20220119
  Receipt Date: 20220119
  Transmission Date: 20220424
  Serious: No
  Sender: FDA-Public Use
  Company Number: US-AMGEN-USASP2022001701

PATIENT
  Age: 73 Year
  Sex: Male

DRUGS (1)
  1. REPATHA [Suspect]
     Active Substance: EVOLOCUMAB
     Indication: Hyperlipidaemia
     Dosage: 140 MILLIGRAM, Q3WK
     Route: 065

REACTIONS (2)
  - Accidental exposure to product [Unknown]
  - Off label use [Unknown]

NARRATIVE: CASE EVENT DATE: 20220104
